FAERS Safety Report 8904123 (Version 1)
Quarter: 2012Q4

REPORT INFORMATION
  Report Type: 
  Country: US (occurrence: US)
  Receive Date: 20121112
  Receipt Date: 20121112
  Transmission Date: 20130627
  Serious: No
  Sender: FDA-Public Use
  Company Number: US-COVIDIEN/TYCO HEALTHCARE/MALLINCKRODT-T201203215

PATIENT
  Age: 41 Year
  Sex: Female

DRUGS (17)
  1. FENTANYL TRANSDERMAL SYSTEM [Suspect]
     Indication: CANCER PAIN
     Dosage: 50 ug/hr, Q 72hrs
     Route: 062
     Dates: start: 2012
  2. LORTAB                             /00607101/ [Concomitant]
     Indication: PAIN
     Dosage: 10 mg, 4-6hrs
  3. PHENERGAN                          /00033001/ [Concomitant]
     Dosage: UNK
  4. CARVEDILOL [Concomitant]
     Dosage: UNK
  5. DIFLUCAN [Concomitant]
     Dosage: UNK
  6. EFFEXOR XR [Concomitant]
     Dosage: UNK
  7. FLONASE [Concomitant]
     Dosage: UNK
  8. BABY ASPIRIN [Concomitant]
     Dosage: UNK
  9. PREDNISONE [Concomitant]
     Dosage: UNK
  10. PRILOSEC                           /00661201/ [Concomitant]
     Dosage: UNK
  11. PROVENTIL                          /00139501/ [Concomitant]
     Dosage: UNK
  12. SYMBICORT [Concomitant]
     Dosage: UNK
  13. XANAX [Concomitant]
     Dosage: UNK
  14. ZYRTEC [Concomitant]
     Dosage: UNK
  15. CIPRO                              /00697201/ [Concomitant]
     Dosage: UNK
  16. TRIAZOLAM [Concomitant]
     Dosage: UNK
  17. LOMOTIL [Concomitant]
     Dosage: UNK

REACTIONS (3)
  - Hypoaesthesia oral [Recovered/Resolved]
  - Wrong technique in drug usage process [Unknown]
  - Drug ineffective [None]
